FAERS Safety Report 16635149 (Version 3)
Quarter: 2021Q2

REPORT INFORMATION
  Report Type: Spontaneous
  Country: BR (occurrence: BR)
  Receive Date: 20190726
  Receipt Date: 20210430
  Transmission Date: 20210716
  Serious: Yes (Other)
  Sender: FDA-Public Use
  Company Number: BR-GLAXOSMITHKLINE-BR2019GSK083123

PATIENT
  Age: 32 Year
  Sex: Female
  Weight: 80 kg

DRUGS (4)
  1. FOLATE [Suspect]
     Active Substance: FOLATE SODIUM
     Indication: PRODUCT USED FOR UNKNOWN INDICATION
     Dosage: 5 MG, QD
     Dates: start: 20190319
  2. TIVICAY [Suspect]
     Active Substance: DOLUTEGRAVIR SODIUM
     Indication: HIV INFECTION
     Dosage: 50 MG
     Route: 048
     Dates: start: 20190227
  3. LAMIVUDINE + TENOFOVIR DISOPROXIL FUMARATE [Suspect]
     Active Substance: LAMIVUDINE\TENOFOVIR DISOPROXIL FUMARATE
     Indication: HIV INFECTION
     Dosage: 1 DF
     Route: 048
  4. ISENTRESS [Suspect]
     Active Substance: RALTEGRAVIR POTASSIUM
     Indication: HIV INFECTION
     Dosage: 800 MG, QD
     Route: 048
     Dates: start: 20190228

REACTIONS (4)
  - Exposure during pregnancy [Unknown]
  - Placental infarction [Unknown]
  - Abortion induced [Unknown]
  - Haemorrhage in pregnancy [Unknown]
